FAERS Safety Report 24688493 (Version 1)
Quarter: 2024Q4

REPORT INFORMATION
  Report Type: Report from Study
  Country: US (occurrence: US)
  Receive Date: 20241202
  Receipt Date: 20241202
  Transmission Date: 20250115
  Serious: Yes (Other)
  Sender: JOHNSON AND JOHNSON
  Company Number: US-JNJFOC-20241153598

PATIENT
  Age: 52 Year
  Sex: Female

DRUGS (2)
  1. SPRAVATO [Suspect]
     Active Substance: ESKETAMINE
     Indication: Depression
     Dosage: ^56 MG, 1 TOTAL DOSE^
     Route: 045
     Dates: start: 20240912, end: 20240912
  2. SPRAVATO [Suspect]
     Active Substance: ESKETAMINE
     Dosage: ^84 MG, 11 TOTAL DOSES^
     Route: 045
     Dates: start: 20240917, end: 20241113

REACTIONS (5)
  - Nasal septum perforation [Not Recovered/Not Resolved]
  - Pain [Unknown]
  - Mouth breathing [Unknown]
  - Exercise tolerance decreased [Unknown]
  - Insomnia [Unknown]

NARRATIVE: CASE EVENT DATE: 20240101
